FAERS Safety Report 9308597 (Version 2)
Quarter: 2014Q1

REPORT INFORMATION
  Report Type: Report from Study
  Country: DE (occurrence: DE)
  Receive Date: 20130524
  Receipt Date: 20140217
  Transmission Date: 20141002
  Serious: Yes (Hospitalization)
  Sender: FDA-Public Use
  Company Number: DE-ELI_LILLY_AND_COMPANY-DE201303004688

PATIENT
  Sex: Female

DRUGS (3)
  1. TERIPARATIDE [Suspect]
     Indication: OSTEOPOROSIS
     Dosage: UNK, QD
     Route: 058
     Dates: start: 20130114
  2. CALCIUM [Concomitant]
  3. VITAMIN D NOS [Concomitant]

REACTIONS (5)
  - Nervous system disorder [Recovered/Resolved]
  - Oedema peripheral [Unknown]
  - Pain [Unknown]
  - Gait disturbance [Unknown]
  - Hypoaesthesia [Unknown]
